FAERS Safety Report 15523990 (Version 1)
Quarter: 2018Q4

REPORT INFORMATION
  Report Type: Spontaneous
  Country: US (occurrence: US)
  Receive Date: 20181018
  Receipt Date: 20181018
  Transmission Date: 20190205
  Serious: No
  Sender: FDA-Public Use
  Company Number: US-HIKMA PHARMACEUTICALS USA INC.-US-H14001-18-05344

PATIENT
  Age: 80 Year
  Sex: Male

DRUGS (3)
  1. INFUMORPH [Suspect]
     Active Substance: MORPHINE SULFATE
     Indication: PRODUCT USED FOR UNKNOWN INDICATION
     Route: 037
     Dates: start: 20180118
  2. INFUMORPH [Suspect]
     Active Substance: MORPHINE SULFATE
     Route: 037
     Dates: start: 20180222
  3. BUPIVACAINE. [Suspect]
     Active Substance: BUPIVACAINE
     Indication: FRACTURED SACRUM
     Route: 037
     Dates: start: 20180222

REACTIONS (2)
  - Back pain [Unknown]
  - Pain in extremity [Unknown]

NARRATIVE: CASE EVENT DATE: 20180222
